FAERS Safety Report 23145836 (Version 3)
Quarter: 2025Q1

REPORT INFORMATION
  Report Type: Spontaneous
  Country: US (occurrence: US)
  Receive Date: 20231103
  Receipt Date: 20250106
  Transmission Date: 20250409
  Serious: Yes (Death, Disabling, Other)
  Sender: CHATTEM
  Company Number: US-OPELLA-2023OHG010948

PATIENT
  Age: 68 Year
  Sex: Male

DRUGS (1)
  1. GOLD BOND ORIGINAL STRENGTH [Suspect]
     Active Substance: MENTHOL
     Indication: Product used for unknown indication
     Route: 065

REACTIONS (5)
  - Pleural mesothelioma [Fatal]
  - Malignant pleural effusion [Fatal]
  - Loss of personal independence in daily activities [Unknown]
  - Exposure to chemical pollution [Unknown]
  - Pain [Unknown]
